FAERS Safety Report 9165739 (Version 1)
Quarter: 2013Q1

REPORT INFORMATION
  Report Type: Spontaneous
  Country: US (occurrence: US)
  Receive Date: 20130315
  Receipt Date: 20130315
  Transmission Date: 20140127
  Serious: No
  Sender: FDA-Public Use
  Company Number: US-BAYER-2013-028309

PATIENT
  Sex: 0

DRUGS (4)
  1. ALEVE CAPLET/TABLET,MIDOL EXTENDED RELIEF CAPLET [Suspect]
     Indication: HEADACHE
  2. ALKA-SELTZER ORIGINAL [Suspect]
  3. ADVIL [Concomitant]
  4. VITAMIN C [Concomitant]

REACTIONS (3)
  - Drug ineffective [None]
  - Abdominal discomfort [None]
  - Drug effect incomplete [None]
